FAERS Safety Report 6644168-5 (Version None)
Quarter: 2010Q1

REPORT INFORMATION
  Report Type: 
  Country: None (occurrence: None)
  Receive Date: 20100322
  Receipt Date: 20100318
  Transmission Date: 20100710
  Serious: Yes (Death, Hospitalization, Other)
  Sender: FDA-Public Use
  Company Number: PHEH2010US01204

PATIENT
  Sex: Female

DRUGS (6)
  1. EXJADE [Suspect]
     Indication: IRON OVERLOAD
     Dosage: 1000 MG, QD
     Route: 048
     Dates: start: 20100113
  2. EXJADE [Suspect]
     Indication: HAEMOLYTIC ANAEMIA
  3. BLOOD TRANSFUSION, AUXILIARY PRODUCTS [Concomitant]
     Dosage: 2 UNITS WEEKLY
  4. LASIX [Concomitant]
  5. DIGOXIN [Concomitant]
  6. DOPAMINE HCL [Concomitant]

REACTIONS (5)
  - DIALYSIS [None]
  - DISEASE PROGRESSION [None]
  - HEPATIC FAILURE [None]
  - MULTI-ORGAN FAILURE [None]
  - RENAL FAILURE [None]
